FAERS Safety Report 24664415 (Version 2)
Quarter: 2024Q4

REPORT INFORMATION
  Report Type: Spontaneous
  Country: US (occurrence: US)
  Receive Date: 20241126
  Receipt Date: 20241217
  Transmission Date: 20250114
  Serious: No
  Sender: AMGEN
  Company Number: US-AMGEN-USASP2024227846

PATIENT
  Age: 73 Year
  Sex: Female

DRUGS (6)
  1. OTEZLA [Suspect]
     Active Substance: APREMILAST
     Indication: Psoriasis
     Dosage: STARTER PACK
     Route: 048
     Dates: start: 20241104
  2. OTEZLA [Suspect]
     Active Substance: APREMILAST
     Dosage: 30 MILLIGRAM, BID
     Route: 048
  3. OTEZLA [Suspect]
     Active Substance: APREMILAST
     Dosage: 30 MILLIGRAM, QD
     Route: 048
  4. CORTISONE [Concomitant]
     Active Substance: CORTISONE
     Dosage: UNK
  5. CORTISONE [Concomitant]
     Active Substance: CORTISONE
     Indication: Product used for unknown indication
     Route: 065
  6. CORTISONE [Concomitant]
     Active Substance: CORTISONE
     Indication: Spinal stenosis
     Route: 065

REACTIONS (11)
  - Fibromyalgia [Recovering/Resolving]
  - Feeling abnormal [Recovering/Resolving]
  - Palpitations [Recovering/Resolving]
  - Dysphonia [Not Recovered/Not Resolved]
  - Anxiety [Recovering/Resolving]
  - Pruritus genital [Unknown]
  - Nausea [Unknown]
  - Back pain [Recovering/Resolving]
  - Diarrhoea [Recovering/Resolving]
  - Hypersensitivity [Recovering/Resolving]
  - Nasopharyngitis [Recovering/Resolving]

NARRATIVE: CASE EVENT DATE: 20241101
